FAERS Safety Report 4365163-5 (Version None)
Quarter: 2004Q2

REPORT INFORMATION
  Report Type: 
  Country: None (occurrence: None)
  Receive Date: 20040525
  Receipt Date: 20040316
  Transmission Date: 20050107
  Serious: No
  Sender: FDA-Public Use
  Company Number: PHEH2004US02432

PATIENT
  Age: 71 Year
  Sex: Female
  Weight: 83 kg

DRUGS (4)
  1. ZELNORM [Suspect]
     Indication: IRRITABLE BOWEL SYNDROME
     Dosage: 6 MG ONCE/SINGLE
     Dates: start: 20040226, end: 20040226
  2. AVALIDE (IRBESARTAN) [Concomitant]
  3. KERLONE [Concomitant]
  4. MEVACOR [Concomitant]

REACTIONS (3)
  - HEAT RASH [None]
  - JOINT SWELLING [None]
  - RASH PRURITIC [None]
